FAERS Safety Report 5123710-X (Version None)
Quarter: 2006Q4

REPORT INFORMATION
  Report Type: 
  Country: None (occurrence: None)
  Receive Date: 20061010
  Receipt Date: 20060927
  Transmission Date: 20070319
  Serious: Yes (Hospitalization)
  Sender: FDA-Public Use
  Company Number: PHHO2006DE16163

PATIENT
  Age: 41 Year
  Sex: Male
  Weight: 128 kg

DRUGS (6)
  1. CERTICAN [Suspect]
     Indication: RENAL TRANSPLANT
     Dosage: NO TREATMENT
  2. MYCOPHENOLATE MOFETIL [Suspect]
     Indication: RENAL TRANSPLANT
     Dosage: 1440 MG DAILY
     Route: 048
     Dates: start: 20060104
  3. NEORAL [Suspect]
     Indication: RENAL TRANSPLANT
     Dosage: 400 MG DAILY DOSE
     Dates: start: 20060104
  4. NEORAL [Suspect]
     Dosage: 450 MG DAILY DOSE
     Route: 048
  5. NEORAL [Suspect]
     Dosage: 350 MG DAILY
     Route: 048
  6. DECORTIN [Suspect]
     Dosage: 30 MG DAILY DOSE
     Route: 048
     Dates: start: 20060330

REACTIONS (7)
  - BLOOD CREATININE INCREASED [None]
  - DIABETES MELLITUS [None]
  - FLUID RETENTION [None]
  - KIDNEY TRANSPLANT REJECTION [None]
  - METABOLIC DISORDER [None]
  - OEDEMA PERIPHERAL [None]
  - WEIGHT INCREASED [None]
